FAERS Safety Report 11064512 (Version 2)
Quarter: 2016Q1

REPORT INFORMATION
  Report Type: Spontaneous
  Country: US (occurrence: US)
  Receive Date: 20150424
  Receipt Date: 20160104
  Transmission Date: 20160525
  Serious: No
  Sender: FDA-Public Use
  Company Number: US-PFIZER INC-2015138010

PATIENT
  Age: 95 Year
  Sex: Male

DRUGS (1)
  1. DOXYCYCLINE HYCLATE. [Suspect]
     Active Substance: DOXYCYCLINE HYCLATE
     Dosage: UNK

REACTIONS (3)
  - Feeling abnormal [Unknown]
  - Gastrointestinal disorder [Unknown]
  - Drug hypersensitivity [Unknown]
